FAERS Safety Report 5526995-0 (Version None)
Quarter: 2007Q4

REPORT INFORMATION
  Report Type: 
  Country: None (occurrence: None)
  Receive Date: 20071127
  Receipt Date: 20071115
  Transmission Date: 20080405
  Serious: Yes (Hospitalization, Other)
  Sender: FDA-Public Use
  Company Number: US-PFIZER INC-2007097905

PATIENT
  Sex: Female
  Weight: 85.909 kg

DRUGS (10)
  1. CHANTIX [Suspect]
     Indication: SMOKING CESSATION THERAPY
  2. FLOVENT [Concomitant]
     Route: 055
  3. ALBUTEROL [Concomitant]
     Route: 055
  4. XANAX [Concomitant]
  5. TOFRANIL [Concomitant]
  6. ALL OTHER THERAPEUTIC PRODUCTS [Concomitant]
  7. TIAZAC [Concomitant]
  8. METFORMIN HCL [Concomitant]
  9. SEROQUEL [Concomitant]
  10. OTHER RESPIRATORY SYSTEM PRODUCTS [Concomitant]

REACTIONS (6)
  - ACTIVITIES OF DAILY LIVING IMPAIRED [None]
  - CYSTITIS [None]
  - DIZZINESS [None]
  - INTENTIONAL DRUG MISUSE [None]
  - MUSCLE DISORDER [None]
  - NAUSEA [None]
